FAERS Safety Report 25235275 (Version 1)
Quarter: 2025Q2

REPORT INFORMATION
  Report Type: Spontaneous
  Country: RU (occurrence: RU)
  Receive Date: 20250424
  Receipt Date: 20250424
  Transmission Date: 20250717
  Serious: Yes (Hospitalization)
  Sender: ORGANON
  Company Number: RU-ORGANON-O2504RUS002161

PATIENT
  Age: 9 Year
  Sex: Male
  Weight: 31 kg

DRUGS (8)
  1. SINGULAIR [Suspect]
     Active Substance: MONTELUKAST SODIUM
     Indication: Asthma
     Dosage: 4 MILLIGRAM, QD
     Route: 048
     Dates: start: 202301
  2. PULMICORT TURBUHALER [Suspect]
     Active Substance: BUDESONIDE
     Indication: Asthma
     Dates: start: 2023, end: 2023
  3. FENOTEROL HYDROBROMIDE\IPRATROPIUM BROMIDE [Suspect]
     Active Substance: FENOTEROL HYDROBROMIDE\IPRATROPIUM BROMIDE
     Indication: Asthma
     Dosage: 10 DROPS 3 TIMES A DAY
     Dates: start: 2023, end: 2023
  4. FENOTEROL HYDROBROMIDE\IPRATROPIUM BROMIDE [Suspect]
     Active Substance: FENOTEROL HYDROBROMIDE\IPRATROPIUM BROMIDE
     Dosage: 15 DROPS 3 TIMES A DAY
     Dates: start: 2023, end: 2023
  5. SPIRIVA RESPIMAT [Suspect]
     Active Substance: TIOTROPIUM BROMIDE
     Indication: Asthma
     Dosage: 2 BREATHS 2 TIMES A DAY
     Dates: start: 2023
  6. SERETIDE [Suspect]
     Active Substance: FLUTICASONE PROPIONATE\SALMETEROL XINAFOATE
     Indication: Asthma
     Dosage: 1 INHALATION 2 TIMES A DAY (50/100)
  7. SERETIDE [Suspect]
     Active Substance: FLUTICASONE PROPIONATE\SALMETEROL XINAFOATE
     Dosage: 1 BREATH 2 TIMES A DAY
  8. SERETIDE [Suspect]
     Active Substance: FLUTICASONE PROPIONATE\SALMETEROL XINAFOATE
     Indication: Asthma
     Dosage: DOSE 1 INHALATION 2 TIMES A DAY THROUGH A SPACER
     Dates: start: 2023

REACTIONS (4)
  - Asthma [Not Recovered/Not Resolved]
  - Epistaxis [Unknown]
  - Nightmare [Unknown]
  - Somnambulism [Unknown]

NARRATIVE: CASE EVENT DATE: 20230101
